FAERS Safety Report 5350951-9 (Version None)
Quarter: 2007Q2

REPORT INFORMATION
  Report Type: 
  Country: None (occurrence: None)
  Receive Date: 20070608
  Receipt Date: 20070529
  Transmission Date: 20071010
  Serious: Yes (Other)
  Sender: FDA-Public Use
  Company Number: TW-JNJFOC-20070506957

PATIENT
  Age: 35 Year
  Sex: Female

DRUGS (10)
  1. RISPERIDONE [Suspect]
     Indication: SOMATIC DELUSION
  2. RISPERIDONE [Suspect]
     Indication: HALLUCINATION, AUDITORY
  3. ALPRAZOLAM [Concomitant]
     Indication: SUICIDAL IDEATION
  4. ALPRAZOLAM [Concomitant]
     Indication: DEPRESSED MOOD
  5. LAMOTRIGINE [Concomitant]
     Indication: SUICIDAL IDEATION
  6. LAMOTRIGINE [Concomitant]
     Indication: DEPRESSED MOOD
  7. ESTAZOLAM [Concomitant]
     Indication: SUICIDAL IDEATION
  8. ESTAZOLAM [Concomitant]
     Indication: DEPRESSED MOOD
  9. FLUOXETINE [Concomitant]
     Indication: SUICIDAL IDEATION
  10. FLUOXETINE [Concomitant]
     Indication: DEPRESSED MOOD

REACTIONS (1)
  - MYOPATHY [None]
